FAERS Safety Report 7793639-7 (Version None)
Quarter: 2011Q4

REPORT INFORMATION
  Report Type: 
  Country: None (occurrence: None)
  Receive Date: 20111003
  Receipt Date: 20110208
  Transmission Date: 20120403
  Serious: No
  Sender: FDA-Public Use
  Company Number: US-BAYER-2011-012795

PATIENT
  Age: 61 Year
  Sex: Male

DRUGS (5)
  1. LEVITRA [Suspect]
     Indication: ERECTILE DYSFUNCTION
     Dosage: 20 MG, ONCE
     Route: 048
     Dates: start: 20110205
  2. VIAGRA [Concomitant]
     Indication: ERECTILE DYSFUNCTION
     Dosage: 100 MG, UNK
     Dates: start: 20110101
  3. CYMBALTA [Concomitant]
  4. AMLODIPINE [Concomitant]
  5. RISPERIDONE [Concomitant]

REACTIONS (4)
  - ERECTILE DYSFUNCTION [None]
  - ABDOMINAL DISCOMFORT [None]
  - FLUSHING [None]
  - DRUG INEFFECTIVE [None]
